FAERS Safety Report 7916723-3 (Version None)
Quarter: 2011Q4

REPORT INFORMATION
  Report Type: 
  Country: None (occurrence: None)
  Receive Date: 20111114
  Receipt Date: 20111101
  Transmission Date: 20120403
  Serious: Yes (Other)
  Sender: FDA-Public Use
  Company Number: 2011SP037118

PATIENT
  Age: 57 Year
  Sex: Male
  Weight: 74.8 kg

DRUGS (4)
  1. CARVEDILOL [Concomitant]
  2. EFFIENT [Concomitant]
  3. PRAVASTATIN [Concomitant]
  4. MIRALAX [Suspect]
     Indication: CONSTIPATION
     Dosage: ONCE;PO
     Route: 048
     Dates: start: 20110804, end: 20110804

REACTIONS (9)
  - SINUS TACHYCARDIA [None]
  - BLOOD PRESSURE DECREASED [None]
  - HYPERSENSITIVITY [None]
  - TREMOR [None]
  - FATIGUE [None]
  - DYSSTASIA [None]
  - UNEVALUABLE EVENT [None]
  - ELECTROCARDIOGRAM ST SEGMENT DEPRESSION [None]
  - FEELING COLD [None]
